FAERS Safety Report 5858470-8 (Version None)
Quarter: 2008Q3

REPORT INFORMATION
  Report Type: 
  Country: None (occurrence: None)
  Receive Date: 20080826
  Receipt Date: 20080815
  Transmission Date: 20090109
  Serious: Yes (Other)
  Sender: FDA-Public Use
  Company Number: US-JNJFOC-20080804089

PATIENT
  Age: 35 Year
  Sex: Male
  Weight: 117.94 kg

DRUGS (1)
  1. EXTRA STRENGTH TYLENOL [Suspect]
     Indication: KNEE OPERATION
     Dosage: 15-20 GELTABS PER DAY
     Route: 048

REACTIONS (9)
  - DIZZINESS [None]
  - DRUG DEPENDENCE [None]
  - FORMICATION [None]
  - HEADACHE [None]
  - INFLUENZA LIKE ILLNESS [None]
  - INSOMNIA [None]
  - OVERDOSE [None]
  - SENSATION OF HEAVINESS [None]
  - WITHDRAWAL SYNDROME [None]
